FAERS Safety Report 21798057 (Version 3)
Quarter: 2023Q1

REPORT INFORMATION
  Report Type: Spontaneous
  Country: US (occurrence: US)
  Receive Date: 20221230
  Receipt Date: 20230206
  Transmission Date: 20230417
  Serious: Yes (Other)
  Sender: FDA-Public Use
  Company Number: US-PFIZER INC-202201391419

PATIENT
  Age: 14 Year
  Sex: Male
  Weight: 23.238 kg

DRUGS (8)
  1. GENOTROPIN [Suspect]
     Active Substance: SOMATROPIN
     Indication: Hypothalamo-pituitary disorder
     Dosage: 0.5, DAILY
     Dates: start: 20221217
  2. GENOTROPIN [Suspect]
     Active Substance: SOMATROPIN
     Dosage: 0.6, DAILY
     Dates: start: 20221218
  3. GENOTROPIN [Suspect]
     Active Substance: SOMATROPIN
     Dosage: 0.7, DAILY
     Dates: start: 20221219
  4. GENOTROPIN [Suspect]
     Active Substance: SOMATROPIN
     Dosage: 0.8, DAILY
     Dates: start: 20221220
  5. GENOTROPIN [Suspect]
     Active Substance: SOMATROPIN
     Dosage: 1.0, DAILY
  6. HYDROCORTISONE [Concomitant]
     Active Substance: HYDROCORTISONE
     Indication: Blood growth hormone abnormal
     Dosage: 10 MG, DAILY (5MG TABLET HALF IN MORNING, HALF AT NOON, AND WHOLE ONE AT NIGHT; 3X A DAY)
  7. LEVOTHYROXINE [Concomitant]
     Active Substance: LEVOTHYROXINE
     Indication: Hypothyroidism
     Dosage: 0.025 MG, DAILY (ONE 0.025MG PER DAY)
  8. VITAMIN D NOS [Concomitant]
     Active Substance: VITAMIN D NOS
     Dosage: UNK, DAILY(EVERY NIGHT)

REACTIONS (5)
  - Device delivery system issue [Unknown]
  - Poor quality device used [Unknown]
  - Injection site pain [Unknown]
  - Crying [Unknown]
  - Malaise [Unknown]

NARRATIVE: CASE EVENT DATE: 20221201
